FAERS Safety Report 9012941 (Version 3)
Quarter: 2013Q1

REPORT INFORMATION
  Report Type: Report from Study
  Country: MY (occurrence: MY)
  Receive Date: 20130114
  Receipt Date: 20130121
  Transmission Date: 20140127
  Serious: Yes (Other)
  Sender: FDA-Public Use
  Company Number: MY-VIIV HEALTHCARE LIMITED-A1007542A

PATIENT
  Age: 28 Year
  Sex: Female

DRUGS (8)
  1. ZIDOVUDINE [Suspect]
     Indication: ANTIRETROVIRAL THERAPY
     Dosage: 600MG PER DAY
     Route: 048
     Dates: start: 20071018, end: 20071201
  2. REYATAZ [Suspect]
     Indication: ANTIRETROVIRAL THERAPY
     Dosage: 400MG PER DAY
     Route: 048
     Dates: start: 20060908
  3. DIDANOSINE [Suspect]
     Indication: ANTIRETROVIRAL THERAPY
     Dosage: 250MG PER DAY
     Route: 048
     Dates: start: 20060908, end: 20071016
  4. EMTRIVA [Suspect]
     Indication: ANTIRETROVIRAL THERAPY
     Dosage: 200MG PER DAY
     Route: 048
     Dates: start: 20060908, end: 20071016
  5. NEVIRAPINE [Suspect]
     Indication: ANTIRETROVIRAL THERAPY
     Dosage: 400MG PER DAY
     Route: 048
     Dates: start: 20071018, end: 20071201
  6. TRUVADA [Suspect]
     Indication: ANTIRETROVIRAL THERAPY
     Dosage: 200MG PER DAY
     Route: 048
     Dates: start: 20071010, end: 20071130
  7. QUININE [Suspect]
     Indication: MALARIA
     Route: 065
     Dates: start: 200704, end: 200704
  8. FANSIDAR [Suspect]
     Indication: MALARIA
     Route: 065
     Dates: start: 200703, end: 20070904

REACTIONS (4)
  - Stillbirth [Unknown]
  - Exposure during pregnancy [Unknown]
  - Malaria [None]
  - Pregnancy [None]
